FAERS Safety Report 21920215 (Version 2)
Quarter: 2023Q1

REPORT INFORMATION
  Report Type: Report from Study
  Country: DE (occurrence: DE)
  Receive Date: 20230127
  Receipt Date: 20230320
  Transmission Date: 20230417
  Serious: Yes (Hospitalization)
  Sender: FDA-Public Use
  Company Number: DE-002147023-NVSC2023DE014593

PATIENT
  Age: 44 Year
  Sex: Male
  Weight: 83 kg

DRUGS (2)
  1. FILGRASTIM [Suspect]
     Active Substance: FILGRASTIM
     Indication: Haematopoietic stem cell mobilisation
     Dosage: UNK (5 TIMES 30 MU/0.5 ML)
     Route: 058
     Dates: start: 20121206
  2. FILGRASTIM [Suspect]
     Active Substance: FILGRASTIM
     Dosage: UNK (5 TIMES 48 MU/0.5 ML)
     Route: 058
     Dates: start: 20121211

REACTIONS (1)
  - Joint dislocation [Recovered/Resolved]

NARRATIVE: CASE EVENT DATE: 20170101
